FAERS Safety Report 10177167 (Version 1)
Quarter: 2014Q2

REPORT INFORMATION
  Report Type: Spontaneous
  Country: CA (occurrence: CA)
  Receive Date: 20140516
  Receipt Date: 20140516
  Transmission Date: 20141212
  Serious: Yes (Hospitalization)
  Sender: FDA-Public Use
  Company Number: CA-TEVA-481906USA

PATIENT
  Sex: Male

DRUGS (9)
  1. ACICLOVIR [Suspect]
     Indication: HERPES ZOSTER
     Route: 048
  2. SYNTHROID [Concomitant]
     Route: 048
  3. RAMIPRIL [Concomitant]
     Indication: BLOOD PRESSURE
     Route: 048
     Dates: start: 20131105
  4. WARFARIN [Concomitant]
     Indication: ATRIAL FIBRILLATION
     Dates: start: 20130616
  5. TYLENOL WITH CODEINE [Concomitant]
     Indication: OSTEOARTHRITIS
     Route: 048
  6. TYLENOL WITH CODEINE [Concomitant]
     Indication: BACK PAIN
  7. BECLOMETHASONE [Concomitant]
  8. NASAL RINSE [Concomitant]
     Indication: HYPERSENSITIVITY
  9. DILTIAZEM [Concomitant]
     Indication: BLOOD PRESSURE
     Dosage: 240 MILLIGRAM DAILY; DOSE INCREASED FROM 120MG TO 240MG AT AN UNKNOWN DATE
     Route: 048
     Dates: start: 20130616

REACTIONS (3)
  - Diarrhoea [Recovered/Resolved]
  - Dehydration [Recovered/Resolved]
  - Headache [Recovered/Resolved]
